FAERS Safety Report 9780227 (Version 1)
Quarter: 2013Q4

REPORT INFORMATION
  Report Type: Spontaneous
  Country: US (occurrence: US)
  Receive Date: 20131223
  Receipt Date: 20131223
  Transmission Date: 20140711
  Serious: Yes (Other)
  Sender: FDA-Public Use
  Company Number: CHPA2013US018459

PATIENT
  Sex: Female

DRUGS (1)
  1. VOLTAREN GEL [Suspect]
     Indication: OFF LABEL USE
     Dosage: UNK
     Route: 061
     Dates: start: 2013

REACTIONS (2)
  - Rectal haemorrhage [Not Recovered/Not Resolved]
  - Therapeutic response unexpected [Unknown]
